FAERS Safety Report 8341703-6 (Version None)
Quarter: 2012Q2

REPORT INFORMATION
  Report Type: 
  Country: None (occurrence: None)
  Receive Date: 20120507
  Receipt Date: 20120501
  Transmission Date: 20120825
  Serious: Yes (Other)
  Sender: FDA-Public Use
  Company Number: US-PFIZER INC-2012107208

PATIENT
  Sex: Female
  Weight: 86.168 kg

DRUGS (1)
  1. XALATAN [Suspect]
     Indication: GLAUCOMA
     Dosage: 1 GTT, 1X/DAY
     Route: 047
     Dates: start: 20090101

REACTIONS (4)
  - OSTEOARTHRITIS [None]
  - PAIN [None]
  - WEIGHT DECREASED [None]
  - DECREASED APPETITE [None]
